FAERS Safety Report 5278120-1 (Version None)
Quarter: 2007Q1

REPORT INFORMATION
  Report Type: 
  Country: None (occurrence: None)
  Receive Date: 20061213
  Receipt Date: 20050801
  Transmission Date: 20070707
  Serious: No
  Sender: FDA-Public Use
  Company Number: 2005UW11327

PATIENT
  Age: 53 Year
  Sex: Male

DRUGS (4)
  1. SEROQUEL [Suspect]
     Dosage: 1000 MG DAILY PO
     Route: 048
  2. PROZAC [Concomitant]
  3. LEXAPRO [Concomitant]
  4. LOXITANE /00401801/ [Concomitant]

REACTIONS (4)
  - BLOOD ALKALINE PHOSPHATASE INCREASED [None]
  - BLOOD CHLORIDE DECREASED [None]
  - BLOOD SODIUM DECREASED [None]
  - WATER INTOXICATION [None]
